FAERS Safety Report 6026737-9 (Version None)
Quarter: 2009Q1

REPORT INFORMATION
  Report Type: 
  Country: None (occurrence: None)
  Receive Date: 20090105
  Receipt Date: 20081202
  Transmission Date: 20090719
  Serious: Yes (Hospitalization)
  Sender: FDA-Public Use
  Company Number: US-ELI_LILLY_AND_COMPANY-US200811004623

PATIENT
  Age: 56 Year
  Sex: Male
  Weight: 69.8 kg

DRUGS (7)
  1. BYETTA [Suspect]
     Indication: TYPE 2 DIABETES MELLITUS
     Dosage: 10 UG, DAILY (1/D)
  2. BYETTA [Suspect]
     Dosage: 10 UG, DAILY (1/D)
  3. GLIMEPIRIDE [Concomitant]
     Dosage: 4 MG, DAILY (1/D)
     Route: 048
  4. TRICOR [Concomitant]
     Dosage: 145 MG, DAILY (1/D)
     Route: 048
  5. ALLOPURINOL [Concomitant]
     Dosage: 300 MG, DAILY (1/D)
     Route: 048
  6. DIOVAN HCT [Concomitant]
     Dosage: UNK, DAILY (1/D)
  7. ASPIRIN [Concomitant]
     Dosage: 81 MG, DAILY (1/D)
     Route: 048

REACTIONS (3)
  - BLOOD GLUCOSE INCREASED [None]
  - CHOLELITHIASIS [None]
  - PANCREATITIS NECROTISING [None]
